FAERS Safety Report 13328734 (Version 1)
Quarter: 2017Q1

REPORT INFORMATION
  Report Type: Spontaneous
  Country: US (occurrence: US)
  Receive Date: 20170311
  Receipt Date: 20170311
  Transmission Date: 20170428
  Serious: Yes (Hospitalization)
  Sender: FDA-Public Use
  Company Number: None

PATIENT
  Age: 3 Year
  Sex: Female
  Weight: 13.05 kg

DRUGS (2)
  1. MIRALAX [Suspect]
     Active Substance: POLYETHYLENE GLYCOL 3350
     Indication: CONSTIPATION
     Dosage: QUANTITY:2 TABLESPOON(S);?
     Route: 048
  2. FLINTSTONES GUMMIES [Concomitant]
     Active Substance: VITAMINS

REACTIONS (1)
  - Seizure [None]

NARRATIVE: CASE EVENT DATE: 20170213
